FAERS Safety Report 9735992 (Version 2)
Quarter: 2013Q4

REPORT INFORMATION
  Report Type: Report from Study
  Country: CA (occurrence: CA)
  Receive Date: 20131206
  Receipt Date: 20131206
  Transmission Date: 20140711
  Serious: Yes (Other)
  Sender: FDA-Public Use
  Company Number: CA-ABBVIE-13P-028-1173175-00

PATIENT
  Age: 58 Year
  Sex: Male
  Weight: 100.79 kg

DRUGS (2)
  1. HUMIRA [Suspect]
     Indication: CROHN^S DISEASE
     Route: 058
     Dates: start: 20060926
  2. SPIRIVA [Concomitant]
     Indication: CHRONIC OBSTRUCTIVE PULMONARY DISEASE
     Dosage: 18 UG, QD
     Route: 055

REACTIONS (3)
  - Heart valve incompetence [Recovered/Resolved]
  - Myocardial infarction [Recovered/Resolved]
  - Crohn^s disease [Unknown]
